FAERS Safety Report 8491982 (Version 2)
Quarter: 2013Q2

REPORT INFORMATION
  Report Type: Spontaneous
  Country: US (occurrence: None)
  Receive Date: 20120321
  Receipt Date: 20120713
  Transmission Date: 20140414
  Serious: No
  Sender: FDA-Public Use
  Company Number: PHHY2011US20912

PATIENT
  Age: 44 Year
  Sex: Female

DRUGS (1)
  1. ILARIS [Suspect]
     Route: 058

REACTIONS (2)
  - WEIGHT INCREASED [None]
  - ARTHRALGIA [None]
